FAERS Safety Report 25975016 (Version 1)
Quarter: 2025Q4

REPORT INFORMATION
  Report Type: Spontaneous
  Country: US (occurrence: US)
  Receive Date: 20251029
  Receipt Date: 20251029
  Transmission Date: 20260117
  Serious: No
  Sender: BAYER HEALTHCARE PHARMACEUTICALS INC.
  Company Number: US-BAYER-2025A141302

PATIENT
  Sex: Female

DRUGS (2)
  1. KYLEENA [Suspect]
     Active Substance: LEVONORGESTREL
     Indication: Intrauterine contraception
     Dosage: 17.5?G/DAY
     Route: 015
     Dates: start: 202312
  2. DUPIXENT [Concomitant]
     Active Substance: DUPILUMAB
     Indication: Asthma

REACTIONS (1)
  - Adverse event [None]
